FAERS Safety Report 13312036 (Version 1)
Quarter: 2017Q1

REPORT INFORMATION
  Report Type: Spontaneous
  Country: US (occurrence: US)
  Receive Date: 20170309
  Receipt Date: 20170309
  Transmission Date: 20170428
  Serious: Yes (Other)
  Sender: FDA-Public Use
  Company Number: US-PFIZER INC-2017094130

PATIENT
  Sex: Female

DRUGS (1)
  1. ROBITUSSIN COUGH AND CHEST CONGESTION DM MAX [Suspect]
     Active Substance: DEXTROMETHORPHAN HYDROBROMIDE\GUAIFENESIN

REACTIONS (10)
  - Throat irritation [Unknown]
  - Sneezing [Unknown]
  - Erythema [Unknown]
  - Nasal oedema [Unknown]
  - Oral pruritus [Unknown]
  - Nasal congestion [Unknown]
  - Swelling face [Unknown]
  - Eye swelling [Unknown]
  - Eye disorder [Unknown]
  - Pruritus generalised [Unknown]
